FAERS Safety Report 19507473 (Version 1)
Quarter: 2021Q3

REPORT INFORMATION
  Report Type: Spontaneous
  Country: CN (occurrence: CN)
  Receive Date: 20210708
  Receipt Date: 20210708
  Transmission Date: 20211014
  Serious: Yes (Hospitalization, Other)
  Sender: FDA-Public Use
  Company Number: CN-ASTRAZENECA-2021A568863

PATIENT
  Age: 25810 Day
  Sex: Male

DRUGS (12)
  1. TAGRISSO [Suspect]
     Active Substance: OSIMERTINIB
     Indication: LUNG NEOPLASM MALIGNANT
     Route: 048
     Dates: start: 20210510, end: 20210615
  2. SODIUM CHLORIDE. [Concomitant]
     Active Substance: SODIUM CHLORIDE
     Indication: MEDICATION DILUTION
     Route: 033
     Dates: start: 20210510, end: 20210510
  3. SODIUM CHLORIDE. [Concomitant]
     Active Substance: SODIUM CHLORIDE
     Indication: MEDICATION DILUTION
     Route: 033
     Dates: start: 20210522, end: 20210522
  4. CISPLATIN. [Concomitant]
     Active Substance: CISPLATIN
     Dates: start: 20210423
  5. ETOPOSIDE. [Suspect]
     Active Substance: ETOPOSIDE
     Indication: LUNG NEOPLASM MALIGNANT
     Route: 041
     Dates: start: 20210520, end: 20210602
  6. TIANENFU [TASONERMIN] [Suspect]
     Active Substance: TASONERMIN
     Indication: LUNG NEOPLASM MALIGNANT
     Route: 033
     Dates: start: 20210530, end: 20210531
  7. ENDOSTAR [Suspect]
     Active Substance: ENDOSTATIN
     Indication: LUNG NEOPLASM MALIGNANT
     Route: 033
     Dates: start: 20210518, end: 20210518
  8. SODIUM CHLORIDE. [Concomitant]
     Active Substance: SODIUM CHLORIDE
     Indication: MEDICATION DILUTION
     Route: 033
     Dates: start: 20210520, end: 20210602
  9. SODIUM CHLORIDE. [Concomitant]
     Active Substance: SODIUM CHLORIDE
     Indication: MEDICATION DILUTION
     Route: 033
     Dates: start: 20210518, end: 20210518
  10. SODIUM CHLORIDE. [Concomitant]
     Active Substance: SODIUM CHLORIDE
     Indication: MEDICATION DILUTION
     Route: 033
     Dates: start: 20210520, end: 20210531
  11. ENDOSTAR [Suspect]
     Active Substance: ENDOSTATIN
     Indication: LUNG NEOPLASM MALIGNANT
     Route: 033
     Dates: start: 20210510, end: 20210510
  12. ENDOSTAR [Suspect]
     Active Substance: ENDOSTATIN
     Indication: LUNG NEOPLASM MALIGNANT
     Route: 033
     Dates: start: 20210522, end: 20210522

REACTIONS (1)
  - Pancytopenia [Recovering/Resolving]

NARRATIVE: CASE EVENT DATE: 20210602
